FAERS Safety Report 15436659 (Version 7)
Quarter: 2020Q1

REPORT INFORMATION
  Report Type: Spontaneous
  Country: US (occurrence: US)
  Receive Date: 20180927
  Receipt Date: 20200326
  Transmission Date: 20200409
  Serious: Yes (Other)
  Sender: FDA-Public Use
  Company Number: US-PFIZER INC-2018389490

PATIENT
  Age: 60 Year
  Sex: Female
  Weight: 104.26 kg

DRUGS (5)
  1. LYRICA [Suspect]
     Active Substance: PREGABALIN
     Indication: SLEEP DISORDER
     Dosage: 600 MG, DAILY (150 MG IN THE MORNING, 200 MG IN THE AFTERNOON, 250 MG IN THE EVENING)
     Dates: start: 2018
  2. TRAMADOL. [Concomitant]
     Active Substance: TRAMADOL
     Dosage: 200 MG, UNK
  3. TRAMADOL. [Concomitant]
     Active Substance: TRAMADOL
     Dosage: 50 MG, 3X/DAY
     Route: 048
  4. TRAMADOL. [Concomitant]
     Active Substance: TRAMADOL
     Dosage: UNK, 4X/DAY
  5. LYRICA [Suspect]
     Active Substance: PREGABALIN
     Indication: DIABETIC NEUROPATHY
     Dosage: 600 MG, DAILY (150MG TWICE A DAY AND 100MG THREE TIMES A DAY)

REACTIONS (20)
  - Hyperhidrosis [Unknown]
  - Malaise [Unknown]
  - Dysphonia [Unknown]
  - Oropharyngeal pain [Unknown]
  - Burning sensation [Unknown]
  - Nasopharyngitis [Recovering/Resolving]
  - Sneezing [Recovering/Resolving]
  - Drug dependence [Unknown]
  - Withdrawal syndrome [Unknown]
  - Cough [Recovering/Resolving]
  - Asthma [Unknown]
  - Therapeutic product effect incomplete [Unknown]
  - Nervousness [Unknown]
  - Pain [Unknown]
  - Tonsillar erythema [Unknown]
  - Chills [Recovering/Resolving]
  - Rhinorrhoea [Unknown]
  - Malaise [Recovering/Resolving]
  - Gait disturbance [Unknown]
  - Pain [Recovering/Resolving]

NARRATIVE: CASE EVENT DATE: 201912
